FAERS Safety Report 15699219 (Version 1)
Quarter: 2018Q4

REPORT INFORMATION
  Report Type: Spontaneous
  Country: US (occurrence: US)
  Receive Date: 20181126
  Receipt Date: 20181126
  Transmission Date: 20190205
  Serious: Yes (Hospitalization)
  Sender: FDA-Public Use
  Company Number: None

PATIENT
  Age: 72 Year
  Sex: Male

DRUGS (1)
  1. CEFTRIAXONE. [Suspect]
     Active Substance: CEFTRIAXONE
     Indication: DYSURIA
     Route: 042
     Dates: start: 20180916, end: 20180916

REACTIONS (3)
  - Probiotic therapy [None]
  - Clostridium difficile colitis [None]
  - Leukocytosis [None]

NARRATIVE: CASE EVENT DATE: 20181007
